FAERS Safety Report 21578604 (Version 1)
Quarter: 2022Q4

REPORT INFORMATION
  Report Type: Spontaneous
  Country: NL (occurrence: NL)
  Receive Date: 20221110
  Receipt Date: 20221110
  Transmission Date: 20230113
  Serious: Yes (Disabling, Other)
  Sender: FDA-Public Use
  Company Number: None

PATIENT
  Sex: Female
  Weight: 73 kg

DRUGS (2)
  1. HYDROXYCHLOROQUINE SULFATE [Suspect]
     Active Substance: HYDROXYCHLOROQUINE SULFATE
     Indication: Systemic lupus erythematosus
     Dosage: BRAND NAME NOT SPECIFIED, THERAPY DURATION : 151 DAYS
     Route: 065
     Dates: start: 20040201, end: 20040701
  2. CLOBETASOL [Concomitant]
     Active Substance: CLOBETASOL
     Indication: Product used for unknown indication
     Dosage: CREAM, 0.5 MG/G (MILLIGRAMS PER GRAM),CLOBETASOL CREAM 0.5MG/G /0.5MG/G, THERAPY START DATE  AND  TH

REACTIONS (2)
  - Tinnitus [Recovering/Resolving]
  - Deafness unilateral [Recovering/Resolving]
